FAERS Safety Report 5334837-1 (Version None)
Quarter: 2007Q2

REPORT INFORMATION
  Report Type: 
  Country: None (occurrence: None)
  Receive Date: 20070525
  Receipt Date: 20070518
  Transmission Date: 20071010
  Serious: Yes (Hospitalization)
  Sender: FDA-Public Use
  Company Number: HU-AMGEN-UK224373

PATIENT
  Sex: Female

DRUGS (5)
  1. PANITUMUMAB [Suspect]
     Indication: COLORECTAL CANCER
     Route: 042
     Dates: start: 20070301, end: 20070301
  2. PERINDOPRIL [Suspect]
     Route: 065
  3. FAMOTIDINE [Suspect]
     Route: 065
  4. TRAMADOL HCL [Suspect]
     Route: 065
  5. NAPROSYN [Suspect]
     Route: 048

REACTIONS (1)
  - VENOUS THROMBOSIS LIMB [None]
